FAERS Safety Report 18450233 (Version 1)
Quarter: 2020Q4

REPORT INFORMATION
  Report Type: Spontaneous
  Country: US (occurrence: US)
  Receive Date: 20201031
  Receipt Date: 20201031
  Transmission Date: 20210114
  Serious: Yes (Disabling, Other)
  Sender: FDA-Public Use
  Company Number: US-NAPPMUNDI-USA-2020-0153149

PATIENT
  Sex: Male

DRUGS (2)
  1. OXYCONTIN [Suspect]
     Active Substance: OXYCODONE HYDROCHLORIDE
     Indication: BACK INJURY
     Dosage: UNK
     Route: 048
     Dates: start: 2007
  2. OXYCODONE HCL TABLETS (RHODES 91-490) [Suspect]
     Active Substance: OXYCODONE HYDROCHLORIDE
     Indication: BACK INJURY
     Dosage: UNK
     Route: 048
     Dates: start: 2007

REACTIONS (3)
  - Stenosis [Unknown]
  - Impaired quality of life [Unknown]
  - Drug dependence [Unknown]
